FAERS Safety Report 9132866 (Version 1)
Quarter: 2013Q1

REPORT INFORMATION
  Report Type: Spontaneous
  Country: PH (occurrence: PH)
  Receive Date: 20130301
  Receipt Date: 20130301
  Transmission Date: 20140127
  Serious: Yes (Death)
  Sender: FDA-Public Use
  Company Number: PH-ASTELLAS-2013JP002573

PATIENT
  Sex: Male

DRUGS (1)
  1. MYCAMINE [Suspect]
     Dosage: UNK
     Route: 042
     Dates: start: 20130222

REACTIONS (1)
  - Death [Fatal]
